FAERS Safety Report 22352220 (Version 1)
Quarter: 2023Q2

REPORT INFORMATION
  Report Type: Spontaneous
  Country: DE (occurrence: DE)
  Receive Date: 20230522
  Receipt Date: 20230522
  Transmission Date: 20230722
  Serious: Yes (Other)
  Sender: FDA-Public Use
  Company Number: None

PATIENT
  Age: 58 Year
  Sex: Female
  Weight: 68 kg

DRUGS (2)
  1. VENLAFAXINE [Suspect]
     Active Substance: VENLAFAXINE HYDROCHLORIDE
     Indication: Mental disorder
     Dosage: MEDICATION WAS TAPERED OFF, EACH TIME BY 37.5MG LESS OVER 3 MONTHS
     Route: 065
     Dates: start: 202108
  2. VENLAFAXINE [Suspect]
     Active Substance: VENLAFAXINE HYDROCHLORIDE
     Route: 065

REACTIONS (15)
  - Hypertension [Recovered/Resolved]
  - Mental impairment [Unknown]
  - Disturbance in attention [Unknown]
  - Sluggishness [Unknown]
  - Feeling abnormal [Unknown]
  - Psychomotor retardation [Unknown]
  - Weight bearing difficulty [Unknown]
  - Drug withdrawal syndrome [Unknown]
  - Dizziness [Recovered/Resolved]
  - Nervousness [Unknown]
  - Musculoskeletal stiffness [Unknown]
  - Fatigue [Unknown]
  - Fatigue [Unknown]
  - Memory impairment [Unknown]
  - Memory impairment [Unknown]

NARRATIVE: CASE EVENT DATE: 20210801
